FAERS Safety Report 13763693 (Version 1)
Quarter: 2017Q3

REPORT INFORMATION
  Report Type: Spontaneous
  Country: FR (occurrence: FR)
  Receive Date: 20170718
  Receipt Date: 20170718
  Transmission Date: 20171127
  Serious: Yes (Hospitalization)
  Sender: FDA-Public Use
  Company Number: PHHY2017FR102481

PATIENT
  Age: 54 Year
  Sex: Female

DRUGS (1)
  1. NEORAL [Suspect]
     Active Substance: CYCLOSPORINE
     Indication: COLITIS
     Dosage: 120 MG, Q4H
     Route: 042
     Dates: start: 20170627, end: 20170627

REACTIONS (1)
  - Incorrect drug administration rate [Unknown]

NARRATIVE: CASE EVENT DATE: 20170627
